FAERS Safety Report 24346008 (Version 1)
Quarter: 2024Q3

REPORT INFORMATION
  Report Type: Spontaneous
  Country: CR (occurrence: CR)
  Receive Date: 20240920
  Receipt Date: 20240920
  Transmission Date: 20241017
  Serious: Yes (Death)
  Sender: NOVITIUM PHARMA
  Company Number: CR-NOVITIUMPHARMA-2024CRNVP01925

PATIENT
  Age: 86 Year
  Sex: Male

DRUGS (2)
  1. PREDNISONE [Suspect]
     Active Substance: PREDNISONE
     Indication: T-cell prolymphocytic leukaemia
  2. CHLORAMBUCIL [Concomitant]
     Active Substance: CHLORAMBUCIL
     Indication: T-cell prolymphocytic leukaemia

REACTIONS (1)
  - Drug ineffective [Fatal]
